FAERS Safety Report 9659709 (Version 3)
Quarter: 2014Q1

REPORT INFORMATION
  Report Type: Spontaneous
  Country: US (occurrence: US)
  Receive Date: 20131031
  Receipt Date: 20140107
  Transmission Date: 20141002
  Serious: No
  Sender: FDA-Public Use
  Company Number: US-PFIZER INC-2013307586

PATIENT
  Age: 67 Year
  Sex: Female

DRUGS (1)
  1. CLINDAMYCIN PHOSPHATE [Suspect]
     Indication: ACNE
     Dosage: UNK, SINGLE
     Route: 061
     Dates: start: 201310, end: 201310

REACTIONS (2)
  - Circumstance or information capable of leading to medication error [Unknown]
  - Product container issue [Unknown]
